FAERS Safety Report 14775978 (Version 3)
Quarter: 2018Q2

REPORT INFORMATION
  Report Type: Report from Study
  Country: None (occurrence: GB)
  Receive Date: 20180418
  Receipt Date: 20180618
  Transmission Date: 20180711
  Serious: Yes (Other)
  Sender: FDA-Public Use
  Company Number: GB-BAUSCH-BL-2018-010119

PATIENT
  Age: 71 Year
  Sex: Male

DRUGS (5)
  1. IXAZOMIB [Suspect]
     Active Substance: IXAZOMIB
     Indication: PRODUCT USED FOR UNKNOWN INDICATION
     Route: 065
  2. LENALIDOMIDE [Suspect]
     Active Substance: LENALIDOMIDE
     Indication: PRODUCT USED FOR UNKNOWN INDICATION
     Route: 065
  3. IXAZOMIB [Suspect]
     Active Substance: IXAZOMIB
     Route: 065
  4. WARFARIN [Concomitant]
     Active Substance: WARFARIN
     Indication: ATRIAL FIBRILLATION
     Route: 065
  5. DEXAMETHASONE. [Suspect]
     Active Substance: DEXAMETHASONE
     Indication: PRODUCT USED FOR UNKNOWN INDICATION
     Route: 065

REACTIONS (17)
  - Hyperkalaemia [Unknown]
  - Thrombocytopenia [Not Recovered/Not Resolved]
  - Light chain analysis increased [Unknown]
  - Diarrhoea [Unknown]
  - Neutropenia [Unknown]
  - Peripheral swelling [Unknown]
  - Fatigue [Unknown]
  - Incontinence [Unknown]
  - Hypernatraemia [Unknown]
  - Influenza [Recovering/Resolving]
  - Haemoglobin abnormal [Unknown]
  - Epistaxis [Unknown]
  - Confusional state [Unknown]
  - Rash [Unknown]
  - Lethargy [Unknown]
  - Contusion [Unknown]
  - Nasopharyngitis [Recovering/Resolving]

NARRATIVE: CASE EVENT DATE: 20171120
